FAERS Safety Report 10390632 (Version 2)
Quarter: 2014Q4

REPORT INFORMATION
  Report Type: Spontaneous
  Country: US (occurrence: US)
  Receive Date: 20140818
  Receipt Date: 20141002
  Transmission Date: 20150528
  Serious: No
  Sender: FDA-Public Use
  Company Number: US-009507513-1408USA000919

PATIENT
  Sex: Female
  Weight: 64.4 kg

DRUGS (3)
  1. NEXPLANON [Suspect]
     Active Substance: ETONOGESTREL
     Dosage: UNK
     Route: 059
     Dates: start: 20140801, end: 20140801
  2. NEXPLANON [Suspect]
     Active Substance: ETONOGESTREL
     Dosage: UNK
     Route: 059
     Dates: start: 20110719, end: 20140801
  3. NEXPLANON [Suspect]
     Active Substance: ETONOGESTREL
     Dosage: ONE ROD/EVERY THREE YEARS
     Route: 059
     Dates: start: 20140801

REACTIONS (5)
  - Incorrect drug administration duration [Unknown]
  - Device difficult to use [Recovered/Resolved]
  - Product quality issue [Unknown]
  - Expired product administered [Unknown]
  - No adverse event [Unknown]

NARRATIVE: CASE EVENT DATE: 20140719
